FAERS Safety Report 7321178-6 (Version None)
Quarter: 2011Q1

REPORT INFORMATION
  Report Type: 
  Country: None (occurrence: None)
  Receive Date: 20110228
  Receipt Date: 20110222
  Transmission Date: 20110831
  Serious: Yes (Hospitalization, Other)
  Sender: FDA-Public Use
  Company Number: US-PFIZER INC-2010171694

PATIENT
  Sex: Female

DRUGS (8)
  1. RITALIN [Concomitant]
     Indication: FATIGUE
  2. TRAZODONE [Concomitant]
     Indication: DEPRESSION
  3. TRAZODONE [Concomitant]
     Indication: INSOMNIA
     Dosage: UNK
     Dates: start: 20040101
  4. CHANTIX [Suspect]
     Indication: SMOKING CESSATION THERAPY
     Dosage: 0.5-1MG, UNK
     Route: 048
     Dates: start: 20081016, end: 20081023
  5. MESALAMINE [Concomitant]
     Indication: CROHN'S DISEASE
     Dosage: UNK
     Dates: start: 19830101
  6. RITALIN [Concomitant]
     Indication: ATTENTION DEFICIT/HYPERACTIVITY DISORDER
     Dosage: UNK
     Dates: start: 20070101
  7. OLANZAPINE [Concomitant]
     Indication: PSYCHOTIC BEHAVIOUR
  8. OLANZAPINE [Concomitant]
     Indication: DEPRESSION
     Dosage: UNK
     Dates: start: 20080101

REACTIONS (7)
  - EMOTIONAL DISTRESS [None]
  - DEPRESSION [None]
  - HALLUCINATION, AUDITORY [None]
  - MENTAL DISORDER [None]
  - ANXIETY [None]
  - SUICIDAL IDEATION [None]
  - IMPAIRED DRIVING ABILITY [None]
